FAERS Safety Report 8587607-5 (Version None)
Quarter: 2012Q3

REPORT INFORMATION
  Report Type: 
  Country: None (occurrence: None)
  Receive Date: 20120811
  Receipt Date: 20120806
  Transmission Date: 20120928
  Serious: Yes (Hospitalization)
  Sender: FDA-Public Use
  Company Number: IT-ABBOTT-12P-083-0958078-00

PATIENT
  Sex: Female

DRUGS (7)
  1. ULTRAVIST 150 [Suspect]
     Indication: COMPUTERISED TOMOGRAM
     Dosage: 80 MILLILITER TOTAL
     Route: 042
     Dates: start: 20120705, end: 20120705
  2. BISOPROLOL FUMARATE [Concomitant]
     Indication: PRODUCT USED FOR UNKNOWN INDICATION
     Route: 048
  3. CLARITHROMYCIN [Suspect]
     Indication: PNEUMONITIS
     Dosage: 2 UNITS DAILY
     Route: 042
     Dates: start: 20120703, end: 20120705
  4. TARGOCID [Suspect]
     Indication: PNEUMONIA
     Route: 042
     Dates: start: 20120706, end: 20120718
  5. CEFTRIAXONE SODIUM [Suspect]
     Indication: PNEUMONITIS
     Route: 042
     Dates: start: 20120628, end: 20120705
  6. PIPERACILLIN AND TAZOBACTAM [Suspect]
     Indication: PNEUMONIA
     Dosage: 3 UNITSDAILY
     Route: 042
     Dates: start: 20120706, end: 20120718
  7. OMEPRAZOLE [Concomitant]
     Indication: PRODUCT USED FOR UNKNOWN INDICATION
     Route: 048

REACTIONS (1)
  - RENAL FAILURE ACUTE [None]
